FAERS Safety Report 11283693 (Version 1)
Quarter: 2015Q3

REPORT INFORMATION
  Report Type: Spontaneous
  Country: TR (occurrence: TR)
  Receive Date: 20150720
  Receipt Date: 20150720
  Transmission Date: 20151125
  Serious: Yes (Hospitalization, Other)
  Sender: FDA-Public Use
  Company Number: TR-UCBSA-2015023060

PATIENT
  Age: 40 Year
  Sex: Male

DRUGS (5)
  1. BENVIDA [Suspect]
     Active Substance: LACOSAMIDE
     Dosage: 100 MG/DAY
     Route: 048
     Dates: start: 201504, end: 201504
  2. BENVIDA [Suspect]
     Active Substance: LACOSAMIDE
     Indication: EPILEPSY
     Dosage: 50 MG, ONCE DAILY (QD)
     Dates: start: 2015, end: 2015
  3. LYRICA [Concomitant]
     Active Substance: PREGABALIN
     Indication: SEIZURE
     Dosage: 2X150 MG/DAY
  4. EPDANTOIN [Concomitant]
     Indication: SEIZURE
     Dosage: 3X100 MG/DAY
  5. TRILEPTAL [Concomitant]
     Active Substance: OXCARBAZEPINE
     Indication: SEIZURE
     Dosage: 3X600 MG/DAY

REACTIONS (1)
  - Status epilepticus [Recovered/Resolved]

NARRATIVE: CASE EVENT DATE: 201504
